FAERS Safety Report 16216730 (Version 2)
Quarter: 2019Q2

REPORT INFORMATION
  Report Type: Report from Study
  Country: FR (occurrence: FR)
  Receive Date: 20190419
  Receipt Date: 20190504
  Transmission Date: 20190711
  Serious: Yes (Hospitalization)
  Sender: FDA-Public Use
  Company Number: PHHO2019FR004167

PATIENT
  Age: 5 Year
  Sex: Female

DRUGS (2)
  1. EVEROLIMUS. [Suspect]
     Active Substance: EVEROLIMUS
     Indication: BRAIN STEM GLIOMA
     Dosage: 5 MG, UNK
     Route: 048
     Dates: start: 20190115, end: 20190409
  2. SOLUPRED [Concomitant]
     Indication: NEUROLOGICAL SYMPTOM
     Dosage: 20 MG, UNK
     Route: 048
     Dates: start: 20181226

REACTIONS (1)
  - Corneal abscess [Recovered/Resolved]

NARRATIVE: CASE EVENT DATE: 20190405
